FAERS Safety Report 8426264 (Version 2)
Quarter: 2012Q4

REPORT INFORMATION
  Report Type: 
  Country: CI (occurrence: CI)
  Receive Date: 20120227
  Receipt Date: 20120924
  Transmission Date: 20130627
  Serious: Yes (Hospitalization, Other)
  Sender: FDA-Public Use
  Company Number: CI-ACCORD-012511

PATIENT
  Age: 80 Year
  Sex: Male

DRUGS (2)
  1. SIMVASTATIN [Suspect]
     Indication: HYPERCHOLESTEROLEMIA
  2. DILTIAZEM [Interacting]
     Indication: BLOOD PRESSURE
     Dosage: diltiazem extended release

REACTIONS (5)
  - Chylothorax [Recovered/Resolved]
  - Drug interaction [Unknown]
  - Normochromic normocytic anaemia [None]
  - Diastolic dysfunction [None]
  - Left atrial dilatation [None]
